FAERS Safety Report 17402893 (Version 1)
Quarter: 2020Q1

REPORT INFORMATION
  Report Type: Spontaneous
  Country: PL (occurrence: PL)
  Receive Date: 20200211
  Receipt Date: 20200211
  Transmission Date: 20200409
  Serious: Yes (Other)
  Sender: FDA-Public Use
  Company Number: PL-MYLANLABS-2020M1014592

PATIENT
  Age: 27 Year
  Sex: Male

DRUGS (3)
  1. LEVETIRACETAM. [Suspect]
     Active Substance: LEVETIRACETAM
     Indication: EPILEPSY
     Dosage: 3000 MG/DAY FOR TWO YEARS
  2. VIGABATRIN. [Suspect]
     Active Substance: VIGABATRIN
     Indication: EPILEPSY
     Dosage: 1500 MG/DAY FOR TWO YEARS
  3. DIAZEPAM. [Concomitant]
     Active Substance: DIAZEPAM
     Indication: SEIZURE
     Dosage: UNK
     Route: 042

REACTIONS (11)
  - Malaise [Recovered/Resolved]
  - Anticonvulsant drug level decreased [Recovered/Resolved]
  - Dyscalculia [Recovered/Resolved]
  - Drug ineffective [Recovered/Resolved]
  - Status epilepticus [Recovered/Resolved]
  - Electroencephalogram abnormal [Recovered/Resolved]
  - Gastrointestinal infection [Recovered/Resolved]
  - Abnormal behaviour [Recovered/Resolved]
  - Vomiting [Recovered/Resolved]
  - Diarrhoea [Recovered/Resolved]
  - Central nervous system lesion [Not Recovered/Not Resolved]
